FAERS Safety Report 4408661-8 (Version None)
Quarter: 2004Q3

REPORT INFORMATION
  Report Type: 
  Country: None (occurrence: None)
  Receive Date: 20040723
  Receipt Date: 20040712
  Transmission Date: 20050211
  Serious: Yes (Hospitalization)
  Sender: FDA-Public Use
  Company Number: 2004030632

PATIENT
  Age: 43 Year
  Sex: Female
  Weight: 73 kg

DRUGS (3)
  1. ZELDOX (ZIPRASIDONE) [Suspect]
     Indication: SCHIZOPHRENIA
     Dosage: 60 MG (60 MG, 2 IN 1 D), ORAL
     Route: 048
     Dates: start: 20040101
  2. CHLORPROTHIXENE HYDROCHLORIDE [Concomitant]
  3. LEVOMEPROMAZINE MALEATE [Concomitant]

REACTIONS (2)
  - BLOOD CREATINE PHOSPHOKINASE INCREASED [None]
  - BLOOD LACTATE DEHYDROGENASE INCREASED [None]
